FAERS Safety Report 12865814 (Version 7)
Quarter: 2018Q2

REPORT INFORMATION
  Report Type: Spontaneous
  Country: US (occurrence: US)
  Receive Date: 20161020
  Receipt Date: 20180627
  Transmission Date: 20180711
  Serious: No
  Sender: FDA-Public Use
  Company Number: US-PFIZER INC-2016487142

PATIENT
  Age: 68 Year
  Sex: Female
  Weight: 68.4 kg

DRUGS (14)
  1. HYDROCODONE/ACETAMINOPHEN [Concomitant]
     Active Substance: ACETAMINOPHEN\HYDROCODONE
     Indication: PAIN
     Dosage: UNK, AS NEEDED (HYDROCODONE: 5MG, PARACETAMOL: 325 MG)
     Route: 048
  2. FOSAMAX [Concomitant]
     Active Substance: ALENDRONATE SODIUM
     Indication: BONE DISORDER
     Dosage: 70 MG, WEEKLY
     Route: 048
     Dates: start: 2015
  3. XELJANZ [Suspect]
     Active Substance: TOFACITINIB CITRATE
     Indication: RHEUMATOID ARTHRITIS
     Dosage: 5 MG, TWICE A DAY (MORNING AND NIGHT)
     Route: 048
     Dates: start: 201608
  4. METHOTREXATE. [Concomitant]
     Active Substance: METHOTREXATE
     Indication: RHEUMATOID ARTHRITIS
     Dosage: 1 MG, WEEKLY (STARTED 10 - 12 YEARS AGO)
     Route: 030
  5. XELJANZ [Suspect]
     Active Substance: TOFACITINIB CITRATE
     Indication: OSTEOARTHRITIS
     Dosage: 5 MG, TWICE A DAY (MORNING AND NIGHT)
     Route: 048
  6. XELJANZ [Suspect]
     Active Substance: TOFACITINIB CITRATE
     Indication: FIBROMYALGIA
     Dosage: 5 MG, TWICE A DAY
     Route: 048
     Dates: start: 2017
  7. FOLIC ACID. [Concomitant]
     Active Substance: FOLIC ACID
     Dosage: 2 DF, 1X/DAY
     Route: 048
     Dates: start: 2014
  8. NITROGLYCERIN. [Concomitant]
     Active Substance: NITROGLYCERIN
     Indication: CHEST DISCOMFORT
     Dosage: 0.4 MG, AS NEEDED [ONE TABLET UNDER THE TONGUE AS NEEDED]
     Route: 060
  9. METHYLPREDNISOLONE. [Concomitant]
     Active Substance: METHYLPREDNISOLONE
     Indication: RHEUMATOID ARTHRITIS
     Dosage: 8 MG, 1X/DAY
     Route: 048
  10. METHYLPREDNISOLONE. [Concomitant]
     Active Substance: METHYLPREDNISOLONE
     Dosage: 8 MG, EVERY OTHER DAY
  11. ATORVASTATIN [Concomitant]
     Active Substance: ATORVASTATIN
     Indication: BLOOD PRESSURE MEASUREMENT
  12. TRIAMTERENE AND HYDROCHLOROTHIAZIDE [Concomitant]
     Active Substance: HYDROCHLOROTHIAZIDE\TRIAMTERENE
     Indication: BLOOD CHOLESTEROL
  13. TRIAMTERENE AND HYDROCHLOROTHIAZIDE [Concomitant]
     Active Substance: HYDROCHLOROTHIAZIDE\TRIAMTERENE
     Indication: BLOOD PRESSURE MEASUREMENT
     Dosage: UNK, 1X/DAY (HYDROCHLOROTHIAZIDE:25 MG, TRIAMTERENE: 37.5 MG)
     Route: 048
  14. ATORVASTATIN [Concomitant]
     Active Substance: ATORVASTATIN
     Indication: BLOOD CHOLESTEROL
     Dosage: 10 MG, 1X/DAY
     Route: 048
     Dates: start: 2014

REACTIONS (9)
  - Musculoskeletal pain [Unknown]
  - Neck pain [Unknown]
  - Pruritus [Unknown]
  - Condition aggravated [Unknown]
  - Vision blurred [Not Recovered/Not Resolved]
  - Exostosis [Unknown]
  - Swelling [Unknown]
  - Arthralgia [Unknown]
  - Intervertebral disc protrusion [Not Recovered/Not Resolved]

NARRATIVE: CASE EVENT DATE: 201609
